FAERS Safety Report 10908766 (Version 1)
Quarter: 2015Q1

REPORT INFORMATION
  Report Type: Spontaneous
  Country: US (occurrence: US)
  Receive Date: 20150312
  Receipt Date: 20150312
  Transmission Date: 20150721
  Serious: No
  Sender: FDA-Public Use
  Company Number: US-PFIZER INC-2015084674

PATIENT
  Age: 54 Year
  Sex: Female
  Weight: 107 kg

DRUGS (1)
  1. AROMASIN [Suspect]
     Active Substance: EXEMESTANE
     Indication: BREAST CANCER
     Dosage: 25 MG, UNK
     Route: 048

REACTIONS (3)
  - Diarrhoea [Unknown]
  - Weight decreased [Unknown]
  - Bone pain [Unknown]
